FAERS Safety Report 8021179-9 (Version None)
Quarter: 2012Q1

REPORT INFORMATION
  Report Type: 
  Country: None (occurrence: None)
  Receive Date: 20120104
  Receipt Date: 20111227
  Transmission Date: 20120608
  Serious: Yes (Other)
  Sender: FDA-Public Use
  Company Number: US-JNJFOC-20110205026

PATIENT
  Age: 19 Year
  Sex: Male
  Weight: 83.92 kg

DRUGS (10)
  1. NEXIUM [Concomitant]
     Route: 048
  2. KLONOPIN [Concomitant]
     Route: 048
  3. INVEGA SUSTENNA [Suspect]
     Indication: SCHIZOPHRENIA
     Route: 030
     Dates: start: 20110214
  4. DOCUSATE [Concomitant]
     Route: 048
  5. VITAMIN C [Concomitant]
     Route: 048
  6. HEPARIN [Concomitant]
     Route: 058
  7. FERROUS SULFATE TAB [Concomitant]
     Route: 048
  8. MULTI-VITAMINS [Concomitant]
     Route: 048
  9. DOXAZOSIN MESYLATE [Concomitant]
     Route: 048
  10. MYLANTA [Concomitant]
     Indication: DYSPEPSIA
     Dosage: AS NEEDED
     Route: 048

REACTIONS (2)
  - ANAPHYLACTOID REACTION [None]
  - PRODUCT QUALITY ISSUE [None]
